FAERS Safety Report 5081269-X (Version None)
Quarter: 2006Q3

REPORT INFORMATION
  Report Type: 
  Country: None (occurrence: None)
  Receive Date: 20060816
  Receipt Date: 20060804
  Transmission Date: 20061208
  Serious: Yes (Hospitalization)
  Sender: FDA-Public Use
  Company Number: FRWYE522304AUG06

PATIENT
  Age: 67 Year
  Sex: Male

DRUGS (4)
  1. ENBREL [Suspect]
     Indication: RHEUMATOID ARTHRITIS
     Dosage: UNKNOWN
     Route: 058
     Dates: start: 20050315, end: 20050419
  2. PREDNISONE [Concomitant]
     Dosage: 10 MG TOTAL DAILY
     Route: 048
  3. PREDNISONE [Concomitant]
     Dosage: 7 MG TOTAL DAILY
     Route: 048
     Dates: start: 20060101
  4. METHOTREXATE [Concomitant]
     Indication: RHEUMATOID ARTHRITIS
     Dosage: 15 MG TOTAL WEEKLY
     Route: 048
     Dates: end: 20050419

REACTIONS (8)
  - ARTHRITIS INFECTIVE [None]
  - CONFUSIONAL STATE [None]
  - DIABETES MELLITUS [None]
  - LUNG INFECTION [None]
  - OSTEOMYELITIS [None]
  - STAPHYLOCOCCAL SEPSIS [None]
  - THROMBOSIS [None]
  - VASCULAR GRAFT COMPLICATION [None]
